FAERS Safety Report 18615544 (Version 1)
Quarter: 2020Q4

REPORT INFORMATION
  Report Type: Report from Study
  Country: None (occurrence: US)
  Receive Date: 20201214
  Receipt Date: 20201214
  Transmission Date: 20210114
  Serious: Yes (Other)
  Sender: FDA-Public Use
  Company Number: US-ABBVIE-20K-163-3566642-00

PATIENT
  Sex: Female

DRUGS (1)
  1. RINVOQ [Suspect]
     Active Substance: UPADACITINIB
     Indication: RHEUMATOID ARTHRITIS
     Route: 048

REACTIONS (7)
  - Cough [Unknown]
  - Sinus congestion [Recovering/Resolving]
  - Sinus headache [Recovering/Resolving]
  - Arthropathy [Unknown]
  - Therapeutic product effect incomplete [Unknown]
  - Cholecystectomy [Unknown]
  - White blood cell count decreased [Unknown]
